FAERS Safety Report 5036340-5 (Version None)
Quarter: 2006Q2

REPORT INFORMATION
  Report Type: 
  Country: None (occurrence: None)
  Receive Date: 20060601
  Receipt Date: 20051129
  Transmission Date: 20061013
  Serious: Yes (Hospitalization)
  Sender: FDA-Public Use
  Company Number: 426777

PATIENT
  Age: 49 Year
  Sex: Female
  Weight: 77.8 kg

DRUGS (1)
  1. LARIAM [Suspect]
     Indication: MALARIA PROPHYLAXIS
     Dosage: 250 MG 1 PER WEEK ORAL
     Route: 048
     Dates: start: 20051015, end: 20051115

REACTIONS (1)
  - CONVULSION [None]
